FAERS Safety Report 13825596 (Version 2)
Quarter: 2018Q3

REPORT INFORMATION
  Report Type: Spontaneous
  Country: US (occurrence: US)
  Receive Date: 20170802
  Receipt Date: 20180921
  Transmission Date: 20181010
  Serious: No
  Sender: FDA-Public Use
  Company Number: US-IGSA-GTI004425

PATIENT
  Age: 11 Year
  Sex: Male

DRUGS (9)
  1. CALCIUM CARBONATE. [Concomitant]
     Active Substance: CALCIUM CARBONATE
     Dosage: UNK
  2. MOTRIN IB [Concomitant]
     Active Substance: IBUPROFEN
     Dosage: UNK
  3. BACTRIM [Concomitant]
     Active Substance: SULFAMETHOXAZOLE\TRIMETHOPRIM
     Dosage: UNK
  4. SYMBICORT [Concomitant]
     Active Substance: BUDESONIDE\FORMOTEROL FUMARATE DIHYDRATE
     Dosage: UNK
  5. PENTASA [Concomitant]
     Active Substance: MESALAMINE
     Dosage: UNK
  6. GAMUNEX?C [Suspect]
     Active Substance: HUMAN IMMUNOGLOBULIN G
     Indication: CROHN^S DISEASE
     Dosage: 100 ML, Q.WK.
     Route: 058
  7. VITAMIN D                          /00107901/ [Concomitant]
     Active Substance: ERGOCALCIFEROL
     Dosage: UNK
  8. ZANTAC [Concomitant]
     Active Substance: RANITIDINE HYDROCHLORIDE
     Dosage: UNK
  9. HUMIRA [Concomitant]
     Active Substance: ADALIMUMAB
     Dosage: UNK

REACTIONS (5)
  - Abdominal pain [Unknown]
  - Streptococcal infection [Unknown]
  - Diarrhoea [Unknown]
  - Back pain [Unknown]
  - Blister [Unknown]
